FAERS Safety Report 19630644 (Version 1)
Quarter: 2021Q3

REPORT INFORMATION
  Report Type: Spontaneous
  Country: FR (occurrence: FR)
  Receive Date: 20210729
  Receipt Date: 20210729
  Transmission Date: 20211014
  Serious: Yes (Hospitalization)
  Sender: FDA-Public Use
  Company Number: FR-ACCORD-233342

PATIENT
  Age: 77 Year
  Sex: Male
  Weight: 67 kg

DRUGS (2)
  1. GEMCITABINE/GEMCITABINE HYDROCHLORIDE [Suspect]
     Active Substance: GEMCITABINE\GEMCITABINE HYDROCHLORIDE
     Indication: TRANSITIONAL CELL CARCINOMA
     Route: 041
     Dates: start: 20210526, end: 20210526
  2. CARBOPLATIN. [Suspect]
     Active Substance: CARBOPLATIN
     Indication: TRANSITIONAL CELL CARCINOMA
     Route: 041
     Dates: start: 20210526, end: 20210526

REACTIONS (4)
  - Off label use [Unknown]
  - Oedema peripheral [Not Recovered/Not Resolved]
  - Arthritis [Not Recovered/Not Resolved]
  - Paraesthesia [Not Recovered/Not Resolved]

NARRATIVE: CASE EVENT DATE: 20210602
